FAERS Safety Report 8106286-4 (Version None)
Quarter: 2012Q1

REPORT INFORMATION
  Report Type: 
  Country: None (occurrence: None)
  Receive Date: 20120202
  Receipt Date: 20120119
  Transmission Date: 20120608
  Serious: Yes (Hospitalization)
  Sender: FDA-Public Use
  Company Number: CA-JNJFOC-20120113505

PATIENT
  Sex: Male
  Weight: 106.9 kg

DRUGS (1)
  1. REMICADE [Suspect]
     Indication: COLITIS ULCERATIVE
     Dosage: HAD TOTAL OF 23 INFUSIONS
     Route: 042

REACTIONS (2)
  - INTESTINAL OBSTRUCTION [None]
  - BILE DUCT STONE [None]
